FAERS Safety Report 4679383-3 (Version None)
Quarter: 2005Q2

REPORT INFORMATION
  Report Type: 
  Country: None (occurrence: None)
  Receive Date: 20050602
  Receipt Date: 20050523
  Transmission Date: 20051028
  Serious: Yes (Life-Threatening)
  Sender: FDA-Public Use
  Company Number: CN-GLAXOSMITHKLINE-B0382483A

PATIENT
  Sex: Male

DRUGS (1)
  1. HEPTODIN [Suspect]
     Indication: SPLENECTOMY
     Dosage: 100MG PER DAY
     Route: 048
     Dates: start: 20001201

REACTIONS (4)
  - COMA HEPATIC [None]
  - HEPATIC NEOPLASM MALIGNANT [None]
  - HEPATIC NEOPLASM MALIGNANT RECURRENT [None]
  - SEPSIS [None]
